FAERS Safety Report 7792925-4 (Version None)
Quarter: 2011Q4

REPORT INFORMATION
  Report Type: 
  Country: None (occurrence: None)
  Receive Date: 20111003
  Receipt Date: 20110923
  Transmission Date: 20120403
  Serious: Yes (Life-Threatening)
  Sender: FDA-Public Use
  Company Number: US-BRISTOL-MYERS SQUIBB COMPANY-16099517

PATIENT
  Age: 50 Year
  Sex: Male

DRUGS (1)
  1. AVALIDE [Suspect]

REACTIONS (4)
  - PALPITATIONS [None]
  - BLOOD PRESSURE INCREASED [None]
  - VENTRICULAR EXTRASYSTOLES [None]
  - TACHYCARDIA [None]
